FAERS Safety Report 21259840 (Version 1)
Quarter: 2022Q3

REPORT INFORMATION
  Report Type: Spontaneous
  Country: US (occurrence: None)
  Receive Date: 20220825
  Receipt Date: 20220825
  Transmission Date: 20221026
  Serious: No
  Sender: FDA-Public Use
  Company Number: None

PATIENT
  Sex: Female
  Weight: 72.12 kg

DRUGS (24)
  1. ETOPOSIDE [Suspect]
     Active Substance: ETOPOSIDE
     Indication: Ovarian cancer
     Dosage: FREQUENCY : DAILY; 14 DAYS ON, 7 D OFF?
     Route: 048
     Dates: start: 202207
  2. CALCIUM\VITAMIN D [Concomitant]
     Active Substance: CALCIUM\VITAMIN D
  3. CLONIDINE [Concomitant]
     Active Substance: CLONIDINE
  4. DORZOLAMIDE [Concomitant]
     Active Substance: DORZOLAMIDE
  5. DUREZOL [Concomitant]
     Active Substance: DIFLUPREDNATE
  6. ELIQUIS [Concomitant]
     Active Substance: APIXABAN
  7. FAMOTIDINE [Concomitant]
     Active Substance: FAMOTIDINE
  8. FISH OIL [Concomitant]
     Active Substance: FISH OIL
  9. FOLIC ACID [Concomitant]
     Active Substance: FOLIC ACID
  10. FUROSEMIDE [Concomitant]
     Active Substance: FUROSEMIDE
  11. HYDROCHLOROTHIAZIDE [Concomitant]
     Active Substance: HYDROCHLOROTHIAZIDE
  12. LACTOBACILLUS ACIDOPHILUS [Concomitant]
     Active Substance: LACTOBACILLUS ACIDOPHILUS
  13. LEVOTHYROXINE [Concomitant]
     Active Substance: LEVOTHYROXINE
  14. MAGNESIUM CHLORIDE [Concomitant]
     Active Substance: MAGNESIUM CHLORIDE
  15. MELATONIN [Concomitant]
     Active Substance: MELATONIN
  16. MULTIVITAMINS/MINERALS (WITH ADEK, FOLATE, IRON) [Concomitant]
  17. ONDANSETRON [Concomitant]
     Active Substance: ONDANSETRON
  18. PERCOCET [Concomitant]
     Active Substance: ACETAMINOPHEN\OXYCODONE HYDROCHLORIDE
  19. POLYETHYLENE GLYCOL 3350 [Concomitant]
     Active Substance: POLYETHYLENE GLYCOL 3350
  20. PROMETHAZINE [Concomitant]
     Active Substance: PROMETHAZINE HYDROCHLORIDE
  21. SYSTANE BALANCE [Concomitant]
     Active Substance: PROPYLENE GLYCOL
  22. TRIAMTERENE [Concomitant]
     Active Substance: TRIAMTERENE
  23. VALTREX [Concomitant]
     Active Substance: VALACYCLOVIR HYDROCHLORIDE
  24. VITAMIN B6 [Suspect]
     Active Substance: PYRIDOXINE HYDROCHLORIDE

REACTIONS (1)
  - Full blood count abnormal [None]
